FAERS Safety Report 16045554 (Version 1)
Quarter: 2019Q1

REPORT INFORMATION
  Report Type: Spontaneous
  Country: CH (occurrence: CH)
  Receive Date: 20190307
  Receipt Date: 20190307
  Transmission Date: 20190418
  Serious: Yes (Other)
  Sender: FDA-Public Use
  Company Number: CH-AMGEN-CHESP2019035440

PATIENT
  Sex: Female

DRUGS (3)
  1. LARTRUVO [Suspect]
     Active Substance: OLARATUMAB
     Indication: SOFT TISSUE SARCOMA
     Dosage: 50 ML, 1 AMPOULE
     Route: 065
     Dates: start: 201806, end: 201810
  2. DOXORUBICIN [Suspect]
     Active Substance: DOXORUBICIN
     Indication: SOFT TISSUE SARCOMA
     Dosage: UNK
     Route: 065
     Dates: start: 201806, end: 201810
  3. NEULASTA [Suspect]
     Active Substance: PEGFILGRASTIM
     Indication: SOFT TISSUE SARCOMA
     Dosage: 6 MG, UNK (1 PRE-FILLED SYRINGE)
     Route: 065
     Dates: start: 201806, end: 201810

REACTIONS (10)
  - Fatigue [Unknown]
  - Dysgeusia [Unknown]
  - Decreased appetite [Unknown]
  - Alopecia [Unknown]
  - Listless [Unknown]
  - Soft tissue sarcoma [Unknown]
  - Constipation [Unknown]
  - Nausea [Unknown]
  - Diarrhoea [Unknown]
  - Off label use [Unknown]

NARRATIVE: CASE EVENT DATE: 2018
